FAERS Safety Report 21490485 (Version 5)
Quarter: 2023Q1

REPORT INFORMATION
  Report Type: Spontaneous
  Country: SE (occurrence: SE)
  Receive Date: 20221021
  Receipt Date: 20230105
  Transmission Date: 20230417
  Serious: Yes (Life-Threatening, Hospitalization, Other)
  Sender: FDA-Public Use
  Company Number: SE-002147023-NVSC2022SE226235

PATIENT
  Sex: Female

DRUGS (24)
  1. OLANZAPINE [Suspect]
     Active Substance: OLANZAPINE
     Indication: Psychotic disorder
     Dosage: 15 MILLIGRAM, ONCE A DAY (1 PIECE EVERY EVENING
     Route: 065
     Dates: start: 2011
  2. OLANZAPINE [Suspect]
     Active Substance: OLANZAPINE
     Indication: Bipolar disorder
     Dosage: 10 MILLIGRAM
     Route: 065
     Dates: start: 2021, end: 202111
  3. OLANZAPINE [Suspect]
     Active Substance: OLANZAPINE
     Dosage: 375 MILLIGRAM
     Route: 065
     Dates: start: 202204
  4. OLANZAPINE [Suspect]
     Active Substance: OLANZAPINE
     Dosage: 1200 MILLIGRAM
     Route: 065
  5. OLANZAPINE [Suspect]
     Active Substance: OLANZAPINE
     Dosage: 15 MILLIGRAM
     Route: 065
  6. CLOZAPINE [Suspect]
     Active Substance: CLOZAPINE
     Indication: Bipolar I disorder
     Dosage: 250 MILLIGRAM
     Route: 065
  7. CLOZAPINE [Suspect]
     Active Substance: CLOZAPINE
     Indication: Bipolar disorder
     Dosage: 400 MILLIGRAM
     Route: 065
     Dates: start: 2007
  8. CLOZAPINE [Suspect]
     Active Substance: CLOZAPINE
     Dosage: 375 MILLIGRAM
     Route: 065
     Dates: start: 20220412
  9. CLOZAPINE [Suspect]
     Active Substance: CLOZAPINE
     Dosage: 300 MILLIGRAM
     Route: 065
     Dates: start: 20220817
  10. CLOZAPINE [Suspect]
     Active Substance: CLOZAPINE
     Indication: Psychotic disorder
     Dosage: 250 MILLIGRAM
     Route: 048
  11. CLOZAPINE [Suspect]
     Active Substance: CLOZAPINE
     Indication: Bipolar disorder
     Dosage: 300 MILLIGRAM
     Route: 048
     Dates: start: 20220817
  12. CLOZAPINE [Suspect]
     Active Substance: CLOZAPINE
     Dosage: 375 MILLIGRAM
     Route: 048
     Dates: start: 20220412
  13. CLOZAPINE [Suspect]
     Active Substance: CLOZAPINE
     Dosage: 400 MILLIGRAM
     Route: 048
     Dates: start: 2007
  14. CLOZAPINE [Suspect]
     Active Substance: CLOZAPINE
     Dosage: 12.5 MILLIGRAM, EVERY WEEK
     Route: 048
     Dates: start: 202204
  15. SPIKEVAX [Suspect]
     Active Substance: ELASOMERAN
     Indication: Product used for unknown indication
     Dosage: UNK
     Route: 065
     Dates: start: 2021, end: 2021
  16. SPIKEVAX [Suspect]
     Active Substance: ELASOMERAN
     Dosage: UNK
     Route: 065
     Dates: start: 202201, end: 202201
  17. Absenor [Concomitant]
     Indication: Bipolar disorder
     Dosage: 1500 MILLIGRAM
     Route: 065
     Dates: start: 202203
  18. Absenor [Concomitant]
     Dosage: UNK
     Route: 065
     Dates: start: 2011
  19. Absenor [Concomitant]
     Dosage: 1500 MILLIGRAM
     Route: 065
     Dates: start: 201103
  20. VALPROIC ACID [Concomitant]
     Active Substance: VALPROIC ACID
     Indication: Bipolar disorder
     Dosage: 15 MILLIGRAM
     Route: 065
     Dates: start: 2011
  21. VALPROIC ACID [Concomitant]
     Active Substance: VALPROIC ACID
     Dosage: 1200 MG
     Route: 065
     Dates: start: 2011
  22. VALPROIC ACID [Concomitant]
     Active Substance: VALPROIC ACID
     Dosage: 1500 MG
     Route: 065
     Dates: start: 202203
  23. VALPROIC ACID [Concomitant]
     Active Substance: VALPROIC ACID
     Dosage: 1500 MG
     Route: 065
     Dates: start: 201103
  24. LITHIUM SULFATE [Concomitant]
     Active Substance: LITHIUM SULFATE
     Indication: Product used for unknown indication
     Dosage: 3 DOSAGE FORM (TABLET)
     Route: 065

REACTIONS (7)
  - Seizure [Recovered/Resolved]
  - Petit mal epilepsy [Not Recovered/Not Resolved]
  - Antipsychotic drug level increased [Not Recovered/Not Resolved]
  - Overweight [Unknown]
  - Product use in unapproved indication [Unknown]
  - Wrong technique in product usage process [Unknown]
  - Intentional product misuse [Unknown]

NARRATIVE: CASE EVENT DATE: 20070101
